FAERS Safety Report 23379474 (Version 1)
Quarter: 2024Q1

REPORT INFORMATION
  Report Type: Spontaneous
  Country: FR (occurrence: FR)
  Receive Date: 20240108
  Receipt Date: 20240108
  Transmission Date: 20240410
  Serious: Yes (Death)
  Sender: FDA-Public Use
  Company Number: None

PATIENT
  Age: 22 Year
  Sex: Male

DRUGS (4)
  1. CYAMEMAZINE [Suspect]
     Active Substance: CYAMEMAZINE
     Indication: Product used for unknown indication
     Dosage: NP
     Route: 048
     Dates: start: 20220423, end: 20220423
  2. QUETIAPINE [Suspect]
     Active Substance: QUETIAPINE
     Indication: Product used for unknown indication
     Dosage: NP
     Route: 048
     Dates: start: 20220423, end: 20220423
  3. DIAZEPAM [Suspect]
     Active Substance: DIAZEPAM
     Indication: Product used for unknown indication
     Dosage: NP
     Route: 048
     Dates: start: 20220423, end: 20220423
  4. LOXAPINE [Suspect]
     Active Substance: LOXAPINE
     Indication: Product used for unknown indication
     Dosage: NP
     Route: 048
     Dates: start: 20220423, end: 20220423

REACTIONS (2)
  - Poisoning deliberate [Fatal]
  - Intentional overdose [Unknown]

NARRATIVE: CASE EVENT DATE: 20220423
